FAERS Safety Report 6993448-2 (Version None)
Quarter: 2010Q3

REPORT INFORMATION
  Report Type: 
  Country: None (occurrence: None)
  Receive Date: 20100917
  Receipt Date: 20100714
  Transmission Date: 20110219
  Serious: No
  Sender: FDA-Public Use
  Company Number: US-ASTRAZENECA-2010SE32854

PATIENT
  Age: 39 Year
  Sex: Female
  Weight: 61.2 kg

DRUGS (3)
  1. SEROQUEL XR [Suspect]
     Indication: OBSESSIVE-COMPULSIVE DISORDER
     Route: 048
     Dates: start: 20100605, end: 20100621
  2. SEROQUEL XR [Suspect]
     Route: 048
     Dates: start: 20100622
  3. BIRTH CONTROL PILLS [Concomitant]
     Indication: CONTRACEPTION

REACTIONS (8)
  - ABDOMINAL DISTENSION [None]
  - DYSARTHRIA [None]
  - FATIGUE [None]
  - INSOMNIA [None]
  - MALAISE [None]
  - MUSCLE TWITCHING [None]
  - NAUSEA [None]
  - POLLAKIURIA [None]
